FAERS Safety Report 4815586-2 (Version None)
Quarter: 2005Q4

REPORT INFORMATION
  Report Type: 
  Country: None (occurrence: None)
  Receive Date: 20051031
  Receipt Date: 20051019
  Transmission Date: 20060501
  Serious: Yes (Hospitalization)
  Sender: FDA-Public Use
  Company Number: JP-BRISTOL-MYERS SQUIBB COMPANY-13150859

PATIENT
  Age: 62 Year
  Sex: Female

DRUGS (2)
  1. TAXOL [Suspect]
     Indication: PERITONEAL CARCINOMA
     Route: 042
     Dates: start: 20050929, end: 20050929
  2. PARAPLATIN [Suspect]
     Indication: PERITONEAL CARCINOMA
     Route: 042
     Dates: start: 20050929, end: 20050929

REACTIONS (1)
  - ILEUS [None]
